FAERS Safety Report 6378790-0 (Version None)
Quarter: 2009Q3

REPORT INFORMATION
  Report Type: 
  Country: None (occurrence: None)
  Receive Date: 20090928
  Receipt Date: 20090916
  Transmission Date: 20100115
  Serious: Yes (Life-Threatening, Hospitalization)
  Sender: FDA-Public Use
  Company Number: JP-BRISTOL-MYERS SQUIBB COMPANY-14586424

PATIENT
  Age: 70 Year
  Sex: Female
  Weight: 80 kg

DRUGS (6)
  1. ERBITUX [Suspect]
     Indication: COLON CANCER
     Dosage: 400MG/M2-10DEC08 250MG/M2-17DEC08-13MAR09:86DAYS RECENT INFUSION BEFORE EVENT 6MAR09
     Route: 042
     Dates: start: 20081210, end: 20090313
  2. IRINOTECAN HCL [Suspect]
     Indication: COLORECTAL CANCER RECURRENT
     Dosage: 10DEC08-16JAN09:150MG/M2,1IN 4WK,DUR:37DAYS 20FEB09:135MG/M2(1 IN 2WK) RECENT INF:06MAR09
     Route: 042
     Dates: start: 20081210, end: 20090116
  3. POLARAMINE [Concomitant]
     Indication: PREMEDICATION
     Route: 042
     Dates: start: 20081210
  4. DECADRON [Concomitant]
     Indication: PREMEDICATION
     Route: 042
     Dates: start: 20081210
  5. DECADRON [Concomitant]
     Indication: ANTIEMETIC SUPPORTIVE CARE
     Route: 042
     Dates: start: 20081210
  6. SEROTONE [Concomitant]
     Indication: ANTIEMETIC SUPPORTIVE CARE
     Route: 042
     Dates: start: 20081210

REACTIONS (2)
  - DIARRHOEA [None]
  - RENAL IMPAIRMENT [None]
